FAERS Safety Report 25590139 (Version 1)
Quarter: 2025Q3

REPORT INFORMATION
  Report Type: Spontaneous
  Country: US (occurrence: US)
  Receive Date: 20250722
  Receipt Date: 20250722
  Transmission Date: 20251021
  Serious: Yes (Hospitalization, Other)
  Sender: NOVO NORDISK
  Company Number: US-NOVOPROD-1480974

PATIENT
  Sex: Female
  Weight: 99.7 kg

DRUGS (1)
  1. WEGOVY [Suspect]
     Active Substance: SEMAGLUTIDE
     Indication: Obesity

REACTIONS (3)
  - Spinal operation [Unknown]
  - Hiatus hernia [Unknown]
  - Sacral pain [Unknown]

NARRATIVE: CASE EVENT DATE: 20230101
